FAERS Safety Report 22224010 (Version 9)
Quarter: 2023Q4

REPORT INFORMATION
  Report Type: Spontaneous
  Country: US (occurrence: US)
  Receive Date: 20230418
  Receipt Date: 20231218
  Transmission Date: 20240109
  Serious: Yes (Other)
  Sender: FDA-Public Use
  Company Number: US-PFIZER INC-PV202300070169

PATIENT
  Age: 81 Year
  Sex: Female
  Weight: 72.7 kg

DRUGS (8)
  1. IBRANCE [Suspect]
     Active Substance: PALBOCICLIB
     Indication: Breast cancer female
     Dosage: 100 MG, CYCLIC [100 MG 21 D (DAY) ON 7 D OFF]
     Route: 048
     Dates: start: 20230328, end: 20230504
  2. IBRANCE [Suspect]
     Active Substance: PALBOCICLIB
     Dosage: 100 MG
     Dates: start: 20230418
  3. IBRANCE [Suspect]
     Active Substance: PALBOCICLIB
     Dosage: 75 MG, 1X/DAY
     Route: 048
     Dates: start: 20230517, end: 20230713
  4. IBRANCE [Suspect]
     Active Substance: PALBOCICLIB
     Dosage: 75 MG, 1X/DAY
     Route: 048
     Dates: start: 20230720
  5. IBRANCE [Suspect]
     Active Substance: PALBOCICLIB
     Dosage: TAKE ONE TABLET (75MG) ORALLY DAILY FOR 14 DAYS THEN STOP FOR 14 DAYS, EVERY 28 DAYS
     Route: 048
     Dates: start: 20230913
  6. AMLODIPINE BESYLATE [Concomitant]
     Active Substance: AMLODIPINE BESYLATE
     Indication: Cardiac disorder
     Dosage: 5 MG (TAKE ONE DOSE)
     Route: 048
  7. ANASTROZOLE [Concomitant]
     Active Substance: ANASTROZOLE
     Indication: Breast cancer female
     Dosage: 1 MG, DAILY
     Dates: start: 20230328
  8. WARFARIN [Concomitant]
     Active Substance: WARFARIN
     Indication: Haemophilia
     Dosage: UNK

REACTIONS (14)
  - Atrial fibrillation [Recovered/Resolved]
  - Malaise [Not Recovered/Not Resolved]
  - Mucosal inflammation [Recovered/Resolved]
  - Fatigue [Not Recovered/Not Resolved]
  - Pharyngeal swelling [Recovered/Resolved]
  - Dysphagia [Recovered/Resolved]
  - Dysgeusia [Unknown]
  - Hypoacusis [Unknown]
  - Oropharyngeal pain [Recovered/Resolved]
  - Oral pain [Unknown]
  - Contusion [Unknown]
  - Laboratory test abnormal [Unknown]
  - Off label use [Unknown]
  - Product use issue [Unknown]

NARRATIVE: CASE EVENT DATE: 20230414
